FAERS Safety Report 8240390-5 (Version None)
Quarter: 2012Q1

REPORT INFORMATION
  Report Type: 
  Country: None (occurrence: None)
  Receive Date: 20120313
  Receipt Date: 20111216
  Transmission Date: 20120608
  Serious: Yes (Other)
  Sender: FDA-Public Use
  Company Number: 341564

PATIENT
  Age: 73 Year
  Sex: Male

DRUGS (2)
  1. NOVOSEVEN RT [Suspect]
     Indication: ACQUIRED HAEMOPHILIA
     Dosage: 6 MG EVERY 2-3 HOURS, SUBCUTANEOUS 8 MG EVERY 2-3 HOURS, SUBCUTANEOUS
     Route: 058
     Dates: start: 20111022, end: 20111026
  2. NOVOSEVEN RT [Suspect]
     Indication: ACQUIRED HAEMOPHILIA
     Dosage: 6 MG EVERY 2-3 HOURS, SUBCUTANEOUS 8 MG EVERY 2-3 HOURS, SUBCUTANEOUS
     Route: 058
     Dates: start: 20111026, end: 20111103

REACTIONS (3)
  - HAEMATURIA [None]
  - ACUTE MYOCARDIAL INFARCTION [None]
  - THERAPEUTIC RESPONSE DECREASED [None]
